FAERS Safety Report 20097299 (Version 6)
Quarter: 2022Q1

REPORT INFORMATION
  Report Type: Report from Study
  Country: US (occurrence: US)
  Receive Date: 20211122
  Receipt Date: 20220128
  Transmission Date: 20220424
  Serious: Yes (Other)
  Sender: FDA-Public Use
  Company Number: US-PFIZER INC-202101555573

PATIENT
  Age: 59 Year
  Sex: Female

DRUGS (3)
  1. IBRANCE [Suspect]
     Active Substance: PALBOCICLIB
     Indication: Breast cancer female
     Dosage: 125 MG, CYCLIC (DAILY FOR 21 DAYS THEN 7 DAYS OFF ON A 28 DAY CYCLE)
     Route: 048
     Dates: start: 20211101
  2. EXEMESTANE [Concomitant]
     Active Substance: EXEMESTANE
     Dosage: UNK
  3. ANASTROZOLE [Concomitant]
     Active Substance: ANASTROZOLE
     Dosage: UNK

REACTIONS (9)
  - Neuropathy peripheral [Unknown]
  - Myelosuppression [Unknown]
  - Fatigue [Not Recovered/Not Resolved]
  - Abdominal discomfort [Unknown]
  - White blood cell count decreased [Not Recovered/Not Resolved]
  - Decreased appetite [Unknown]
  - Rash [Unknown]
  - Alopecia [Not Recovered/Not Resolved]
  - Stomatitis [Not Recovered/Not Resolved]

NARRATIVE: CASE EVENT DATE: 20211101
